FAERS Safety Report 4699531-9 (Version None)
Quarter: 2005Q2

REPORT INFORMATION
  Report Type: 
  Country: None (occurrence: None)
  Receive Date: 20050126
  Receipt Date: 20050126
  Transmission Date: 20051028
  Serious: Yes (Other)
  Sender: FDA-Public Use
  Company Number: None

PATIENT
  Sex: Female
  Weight: 59 kg

DRUGS (1)
  1. PEPCID [Suspect]
     Indication: GASTRITIS
     Dosage: 40MG PO QD
     Route: 048

REACTIONS (2)
  - GASTROINTESTINAL DISORDER [None]
  - UNEVALUABLE EVENT [None]
